FAERS Safety Report 7815156-8 (Version None)
Quarter: 2011Q4

REPORT INFORMATION
  Report Type: 
  Country: None (occurrence: None)
  Receive Date: 20111014
  Receipt Date: 20111003
  Transmission Date: 20120403
  Serious: Yes (Other)
  Sender: FDA-Public Use
  Company Number: US-PERRIGO-11US008371

PATIENT
  Age: 77 Year
  Sex: Male
  Weight: 83.9 kg

DRUGS (4)
  1. LIPID MODIFYING AGENTS [Concomitant]
     Indication: BLOOD CHOLESTEROL INCREASED
     Dosage: UNK
     Route: 065
  2. NASAL SPRAY [Concomitant]
     Indication: PRODUCT USED FOR UNKNOWN INDICATION
     Dosage: UNK
     Route: 065
  3. ANTIHYPERTENSIVES [Concomitant]
     Indication: HYPERTENSION
     Dosage: UNK
     Route: 065
  4. NITETIME FREE MXD BRY 6HR LIQ 990 [Suspect]
     Indication: INSOMNIA
     Dosage: 2 DOSES, DAILY
     Route: 048

REACTIONS (4)
  - OFF LABEL USE [None]
  - DRUG DEPENDENCE [None]
  - INCORRECT DRUG ADMINISTRATION DURATION [None]
  - DRUG ADMINISTRATION ERROR [None]
